FAERS Safety Report 4550884-1 (Version None)
Quarter: 2004Q4

REPORT INFORMATION
  Report Type: 
  Country: None (occurrence: None)
  Receive Date: 20041217
  Receipt Date: 20040906
  Transmission Date: 20050328
  Serious: No
  Sender: FDA-Public Use
  Company Number: 2004-BP-08182BP

PATIENT
  Age: 66 Year
  Sex: Male
  Weight: 109.7 kg

DRUGS (7)
  1. SPIRIVA [Suspect]
     Indication: CHRONIC OBSTRUCTIVE AIRWAYS DISEASE
     Dosage: 36 MCG (18 MCG, ONE PUFF BID), IH
     Route: 055
     Dates: start: 20040721, end: 20040826
  2. LIPITOR [Concomitant]
  3. ZETIA [Concomitant]
  4. ALLUPURINOL (ALLOPURINOL) [Concomitant]
  5. NEXIUM [Concomitant]
  6. ATENOLOL [Concomitant]
  7. BEXTRA [Concomitant]

REACTIONS (2)
  - DYSPNOEA [None]
  - MUSCLE CRAMP [None]
